FAERS Safety Report 10599821 (Version 1)
Quarter: 2014Q4

REPORT INFORMATION
  Report Type: Spontaneous
  Country: US (occurrence: US)
  Receive Date: 20141121
  Receipt Date: 20141121
  Transmission Date: 20150529
  Serious: Yes (Other)
  Sender: FDA-Public Use
  Company Number: US-GILEAD-2014-0123030

PATIENT
  Sex: Male
  Weight: 90 kg

DRUGS (13)
  1. METHADONE [Concomitant]
     Active Substance: METHADONE HYDROCHLORIDE
  2. METOPROLOL [Concomitant]
     Active Substance: METOPROLOL
  3. LASIX [Concomitant]
     Active Substance: FUROSEMIDE
  4. SOVALDI [Suspect]
     Active Substance: SOFOSBUVIR
     Indication: HEPATITIS C
     Dosage: 6 DF, QD
     Route: 048
  5. KCL [Concomitant]
     Active Substance: POTASSIUM CHLORIDE
  6. SOVALDI [Suspect]
     Active Substance: SOFOSBUVIR
     Dosage: 1 DF, UNK
     Route: 048
  7. HCTZ [Concomitant]
     Active Substance: HYDROCHLOROTHIAZIDE
  8. VITAMIN D3 [Concomitant]
     Active Substance: CHOLECALCIFEROL
  9. RIBAVIRIN. [Concomitant]
     Active Substance: RIBAVIRIN
  10. PRILOSEC [Concomitant]
     Active Substance: OMEPRAZOLE MAGNESIUM
  11. FISH OIL [Concomitant]
     Active Substance: FISH OIL
  12. PEGASYS [Concomitant]
     Active Substance: PEGINTERFERON ALFA-2A
  13. LEXAPRO [Concomitant]
     Active Substance: ESCITALOPRAM OXALATE

REACTIONS (5)
  - Dizziness [Unknown]
  - Overdose [Unknown]
  - Drug ineffective [Unknown]
  - Hepatitis C [Unknown]
  - Feeling abnormal [Unknown]

NARRATIVE: CASE EVENT DATE: 20141113
